FAERS Safety Report 4625152-X (Version None)
Quarter: 2005Q2

REPORT INFORMATION
  Report Type: 
  Country: None (occurrence: None)
  Receive Date: 20050325
  Receipt Date: 20050124
  Transmission Date: 20051028
  Serious: No
  Sender: FDA-Public Use
  Company Number: USA050189113

PATIENT
  Age: 79 Year
  Sex: Female

DRUGS (5)
  1. FORTEO [Suspect]
     Indication: OSTEOPOROSIS
     Dates: start: 20041001
  2. TAMBOCOR [Concomitant]
  3. FUROSEMIDE [Concomitant]
  4. CALCIUM GLUCONATE [Concomitant]
  5. FOSAMAX [Concomitant]

REACTIONS (3)
  - FEELING ABNORMAL [None]
  - MYALGIA [None]
  - NAUSEA [None]
